FAERS Safety Report 5393122-2 (Version None)
Quarter: 2007Q3

REPORT INFORMATION
  Report Type: 
  Country: None (occurrence: None)
  Receive Date: 20070719
  Receipt Date: 20070709
  Transmission Date: 20080115
  Serious: Yes (Death)
  Sender: FDA-Public Use
  Company Number: 2007-03227

PATIENT
  Age: 41 Year
  Sex: Male

DRUGS (1)
  1. METHYLPREDNISOLONE ACETATE [Suspect]
     Indication: SPONDYLITIS
     Dosage: 40 MG Q WEEK X 3 DOSES, EPIDURAL
     Route: 008
     Dates: start: 20060101, end: 20060101

REACTIONS (2)
  - BRAIN STEM INFARCTION [None]
  - POST PROCEDURAL COMPLICATION [None]
